FAERS Safety Report 17444794 (Version 1)
Quarter: 2020Q1

REPORT INFORMATION
  Report Type: Spontaneous
  Country: DE (occurrence: DE)
  Receive Date: 20200221
  Receipt Date: 20200221
  Transmission Date: 20200409
  Serious: Yes (Hospitalization)
  Sender: FDA-Public Use
  Company Number: DE-TEVA-2020-DE-1189593

PATIENT
  Age: 77 Year
  Sex: Female
  Weight: 75 kg

DRUGS (9)
  1. SODIUM CHLORIDE. [Concomitant]
     Active Substance: SODIUM CHLORIDE
     Dosage: 1 G, 1-1-1-0
     Route: 048
  2. EISEN(II) [Concomitant]
     Dosage: 80.5 MG, 1-0-0-0, EFFERVESCENT TABLETS
     Route: 048
  3. ATORVASTATIN [Concomitant]
     Active Substance: ATORVASTATIN
     Dosage: 20 MG, 0-0-0-1
     Route: 048
  4. BISOPROLOL [Suspect]
     Active Substance: BISOPROLOL
     Dosage: 2.5 MG, 1-0-0-0
     Route: 048
  5. PIPAMPERON [Concomitant]
     Active Substance: PIPAMPERONE HYDROCHLORIDE
     Dosage: 10 MG, 1-1-2-3, JUICE
     Route: 048
  6. VENLAFAXIN [Concomitant]
     Active Substance: VENLAFAXINE HYDROCHLORIDE
     Dosage: 75 MG, 3-0-0-0
     Route: 048
  7. COLECALCIFEROL (VITAMIN D) [Concomitant]
     Dosage: 1000 IU, 1-0-0-0
     Route: 048
  8. CLOPIDOGREL [Concomitant]
     Active Substance: CLOPIDOGREL BISULFATE
     Dosage: 75 MG, 0-1-0-0
     Route: 048
  9. AMBROXOL [Concomitant]
     Active Substance: AMBROXOL
     Dosage: 30 MG, 1-1-1-0
     Route: 048

REACTIONS (2)
  - Electrocardiogram abnormal [Unknown]
  - Bradycardia [Unknown]
